FAERS Safety Report 8492091-6 (Version None)
Quarter: 2012Q3

REPORT INFORMATION
  Report Type: 
  Country: None (occurrence: None)
  Receive Date: 20120706
  Receipt Date: 20120626
  Transmission Date: 20120928
  Serious: Yes (Other)
  Sender: FDA-Public Use
  Company Number: US-ABBOTT-12P-163-0950448-00

PATIENT
  Sex: Female
  Weight: 81.72 kg

DRUGS (3)
  1. HUMIRA [Suspect]
     Dates: start: 20110101, end: 20110101
  2. HUMIRA [Suspect]
     Dates: start: 20110101, end: 20120101
  3. HUMIRA [Suspect]
     Indication: PSORIASIS
     Dates: start: 20100101, end: 20110101

REACTIONS (4)
  - MENISCUS LESION [None]
  - PSORIASIS [None]
  - RASH [None]
  - DRUG INEFFECTIVE [None]
